FAERS Safety Report 7374234-0 (Version None)
Quarter: 2011Q1

REPORT INFORMATION
  Report Type: 
  Country: None (occurrence: None)
  Receive Date: 20110325
  Receipt Date: 20110314
  Transmission Date: 20110831
  Serious: Yes (Life-Threatening, Hospitalization)
  Sender: FDA-Public Use
  Company Number: DE-CELGENEUS-062-21880-11030348

PATIENT
  Age: 74 Year
  Sex: Male

DRUGS (5)
  1. PAMIDRONATE DISODIUM [Concomitant]
     Indication: PLASMACYTOMA
     Route: 065
     Dates: start: 20050101
  2. PREDNISOLONE [Concomitant]
     Route: 065
  3. METFORMIN [Concomitant]
     Indication: DIABETES MELLITUS
     Route: 065
  4. REVLIMID [Suspect]
     Indication: MULTIPLE MYELOMA
     Dosage: 25 MILLIGRAM
     Route: 048
     Dates: start: 20090213, end: 20100416
  5. REVLIMID [Suspect]
     Route: 048
     Dates: start: 20100901

REACTIONS (1)
  - SEPSIS [None]
